FAERS Safety Report 5711940-5 (Version None)
Quarter: 2008Q2

REPORT INFORMATION
  Report Type: 
  Country: None (occurrence: None)
  Receive Date: 20080421
  Receipt Date: 20080409
  Transmission Date: 20081010
  Serious: Yes (Death, Life-Threatening, Hospitalization)
  Sender: FDA-Public Use
  Company Number: US-ELI_LILLY_AND_COMPANY-US200710006501

PATIENT
  Sex: Female

DRUGS (6)
  1. CYMBALTA [Suspect]
     Indication: MAJOR DEPRESSION
     Dosage: 20 MG, UNK
     Dates: start: 20070426
  2. CYMBALTA [Suspect]
     Dosage: 120 MG, DAILY (1/D)
  3. CYMBALTA [Suspect]
     Dosage: 1 D/F, UNK
  4. AMBIEN [Concomitant]
     Dosage: UNK, AS NEEDED
  5. VALIUM [Concomitant]
  6. ALCOHOL [Concomitant]

REACTIONS (7)
  - COMA [None]
  - COMPLETED SUICIDE [None]
  - HAEMORRHAGE [None]
  - LIVER FUNCTION TEST ABNORMAL [None]
  - OVERDOSE [None]
  - RENAL FAILURE ACUTE [None]
  - SEPSIS [None]
